FAERS Safety Report 5409818-X (Version None)
Quarter: 2007Q3

REPORT INFORMATION
  Report Type: 
  Country: None (occurrence: None)
  Receive Date: 20070809
  Receipt Date: 20070801
  Transmission Date: 20080115
  Serious: Yes (Disabling)
  Sender: FDA-Public Use
  Company Number: B0480936A

PATIENT
  Sex: Female

DRUGS (6)
  1. NIQUITIN CQ CLEAR 21MG [Suspect]
     Dosage: 21MG PER DAY
     Route: 062
     Dates: start: 20070601, end: 20070709
  2. OMEPRAZOLE [Concomitant]
     Dosage: 10MG PER DAY
  3. HRT [Concomitant]
  4. LEVOTHYROXINE SODIUM [Concomitant]
     Dosage: 50MG PER DAY
     Route: 065
  5. DOXYCYCLINE [Concomitant]
     Dosage: 100MG PER DAY
  6. PREMARIN [Concomitant]
     Dosage: 1.25MG PER DAY

REACTIONS (9)
  - APPLICATION SITE ERYTHEMA [None]
  - APPLICATION SITE PRURITUS [None]
  - EYE SWELLING [None]
  - INSOMNIA [None]
  - PAIN [None]
  - PRURITUS [None]
  - PRURITUS GENERALISED [None]
  - RASH [None]
  - URTICARIA [None]
